FAERS Safety Report 12677120 (Version 1)
Quarter: 2016Q3

REPORT INFORMATION
  Report Type: Spontaneous
  Country: US (occurrence: US)
  Receive Date: 20160823
  Receipt Date: 20160823
  Transmission Date: 20161109
  Serious: No
  Sender: FDA-Public Use
  Company Number: US-TEVA-600371USA

PATIENT
  Sex: Female

DRUGS (1)
  1. KARIVA [Suspect]
     Active Substance: DESOGESTREL\ETHINYL ESTRADIOL
     Indication: ORAL CONTRACEPTION
     Dosage: 0.15 MG / 0.02 MG / 0.01 MG
     Route: 065
     Dates: start: 20150111

REACTIONS (4)
  - Drug ineffective [Unknown]
  - Insomnia [Unknown]
  - Product packaging issue [Unknown]
  - Mood swings [Unknown]

NARRATIVE: CASE EVENT DATE: 201509
